FAERS Safety Report 6188414-3 (Version None)
Quarter: 2009Q2

REPORT INFORMATION
  Report Type: 
  Country: None (occurrence: None)
  Receive Date: 20090513
  Receipt Date: 20090508
  Transmission Date: 20091009
  Serious: Yes (Other)
  Sender: FDA-Public Use
  Company Number: US-BAYER-200914379NA

PATIENT
  Age: 19 Year
  Sex: Female
  Weight: 64 kg

DRUGS (1)
  1. MIRENA [Suspect]
     Indication: CONTRACEPTION
     Route: 015
     Dates: start: 20090227, end: 20090227

REACTIONS (5)
  - DEVICE SHAPE ALTERATION [None]
  - HYPOAESTHESIA [None]
  - IUD MIGRATION [None]
  - PAIN [None]
  - PROCEDURAL PAIN [None]
